FAERS Safety Report 13952386 (Version 1)
Quarter: 2017Q3

REPORT INFORMATION
  Report Type: Spontaneous
  Country: US (occurrence: US)
  Receive Date: 20170911
  Receipt Date: 20170911
  Transmission Date: 20171128
  Serious: Yes (Other)
  Sender: FDA-Public Use
  Company Number: US-TEVA-720508USA

PATIENT
  Age: 62 Year
  Sex: Male
  Weight: 104 kg

DRUGS (25)
  1. GABAPENTIN. [Concomitant]
     Active Substance: GABAPENTIN
     Dosage: 1200 MILLIGRAM DAILY;
  2. RANITIDINE. [Concomitant]
     Active Substance: RANITIDINE
     Dosage: 150 MILLIGRAM DAILY;
  3. OPIOIDS [Concomitant]
     Active Substance: UNSPECIFIED INGREDIENT
     Dosage: 195 MILLIGRAM DAILY;
  4. HYDROXYZINE PAMOATE. [Concomitant]
     Active Substance: HYDROXYZINE PAMOATE
     Dosage: 150 MILLIGRAM DAILY;
  5. IBUPROFEN. [Concomitant]
     Active Substance: IBUPROFEN
     Dosage: 2400 MILLIGRAM DAILY;
  6. VITAMIN D 3 [Concomitant]
  7. VITAMIN E [Concomitant]
     Active Substance: .ALPHA.-TOCOPHEROL
  8. OMEGA 3,6,9 [Concomitant]
  9. MORPHINE [Concomitant]
     Active Substance: MORPHINE
     Dosage: 120 MILLIGRAM DAILY;
  10. DEPO TESTOSTERONE [Concomitant]
     Active Substance: TESTOSTERONE
     Dosage: 14.2857 MILLIGRAM DAILY;
  11. BACLOFEN. [Concomitant]
     Active Substance: BACLOFEN
     Dosage: 30 MILLIGRAM DAILY;
  12. CYMBALTA [Concomitant]
     Active Substance: DULOXETINE HYDROCHLORIDE
     Dosage: 60 MILLIGRAM DAILY;
  13. MIRALAX [Concomitant]
     Active Substance: POLYETHYLENE GLYCOL 3350
  14. MIRTAZAPINE. [Concomitant]
     Active Substance: MIRTAZAPINE
  15. SUCRALFATE. [Concomitant]
     Active Substance: SUCRALFATE
     Dosage: 2 GRAM DAILY;
  16. FENTANYL. [Suspect]
     Active Substance: FENTANYL
     Indication: PAIN
     Route: 062
     Dates: start: 20161203, end: 20161208
  17. OXYCODONE [Concomitant]
     Active Substance: OXYCODONE
     Dosage: 50 MILLIGRAM DAILY;
  18. CENTRUM SILVER MEN OVER 50 MULTI VITAMIN [Concomitant]
  19. SUPER B COMPLEX [Concomitant]
     Active Substance: CYANOCOBALAMIN\DEXPANTHENOL\NIACINAMIDE\PYRIDOXINE HYDROCHLORIDE\RIBOFLAVIN 5^-PHOSPHATE SODIUM\THIAMINE HYDROCHLORIDE\VITAMIN B COMPLEX
  20. FLOMAX-TAMSULOSIN [Concomitant]
     Dosage: 8 MILLIGRAM DAILY;
  21. MAGNESIUM [Concomitant]
     Active Substance: MAGNESIUM
  22. DEXTROAMPHETAMINE. [Concomitant]
     Active Substance: DEXTROAMPHETAMINE
     Dosage: 40 MILLIGRAM DAILY;
  23. WELLBUTRN-BUPROPIONXL [Concomitant]
     Dosage: 450 MILLIGRAM DAILY;
  24. IPRATROPIUM BROMIDE. [Concomitant]
     Active Substance: IPRATROPIUM BROMIDE
     Dosage: 240 MILLIGRAM DAILY; 15MLX16SPRAYS
  25. VENTOLIN HFA [Concomitant]
     Active Substance: ALBUTEROL SULFATE

REACTIONS (15)
  - Insomnia [Recovered/Resolved]
  - Feeling hot [Recovered/Resolved]
  - Head discomfort [Recovered/Resolved]
  - Hyperhidrosis [Recovered/Resolved]
  - Palpitations [Recovered/Resolved]
  - Feeling cold [Recovered/Resolved]
  - Malaise [Recovered/Resolved]
  - Drug withdrawal syndrome [Recovered/Resolved]
  - Vision blurred [Recovered/Resolved]
  - Anxiety [Recovered/Resolved]
  - Pyrexia [Recovered/Resolved]
  - Feeling jittery [Recovered/Resolved]
  - Restlessness [Recovered/Resolved]
  - Rhinorrhoea [Recovered/Resolved]
  - Nausea [Recovered/Resolved]

NARRATIVE: CASE EVENT DATE: 20161203
